FAERS Safety Report 7778232-4 (Version None)
Quarter: 2011Q3

REPORT INFORMATION
  Report Type: 
  Country: None (occurrence: None)
  Receive Date: 20110926
  Receipt Date: 20110915
  Transmission Date: 20111222
  Serious: Yes (Hospitalization)
  Sender: FDA-Public Use
  Company Number: US-BRISTOL-MYERS SQUIBB COMPANY-15878788

PATIENT
  Age: 51 Year
  Sex: Male
  Weight: 129 kg

DRUGS (31)
  1. COMBIGAN [Concomitant]
     Dosage: 1.GTT EYE
     Route: 047
     Dates: start: 20101015
  2. VALCYTE [Concomitant]
     Dosage: 1 DF = 450 NOS
  3. ATORVASTATIN [Concomitant]
     Route: 048
  4. METOPROLOL TARTRATE [Concomitant]
     Route: 048
  5. COZAAR [Concomitant]
  6. RAPAMUNE [Concomitant]
     Route: 042
     Dates: start: 20090316
  7. AMLEXANOX [Concomitant]
     Dosage: BID PRN
     Route: 061
     Dates: start: 20100908
  8. DOCUSATE [Concomitant]
     Indication: CONSTIPATION
     Dosage: AS NECESSARY
     Route: 048
  9. FERROUS SULFATE TAB [Concomitant]
     Route: 048
     Dates: start: 20110707
  10. HUMULIN R [Concomitant]
     Dates: start: 20080529
  11. MINOXIDIL [Concomitant]
     Route: 048
  12. CLONIDINE [Concomitant]
     Route: 048
  13. THYMOGLOBULIN [Suspect]
     Indication: RENAL TRANSPLANT
     Route: 042
     Dates: start: 20071214, end: 20071219
  14. ASPIRIN [Concomitant]
     Dosage: CHEW. TABS
     Route: 048
     Dates: start: 20071215
  15. LASIX [Concomitant]
     Route: 048
     Dates: start: 20110406
  16. SYNTHROID [Concomitant]
     Route: 048
     Dates: start: 20071214
  17. LOSARTAN POTASSIUM [Concomitant]
     Route: 048
  18. FERROUS GLUCONATE [Concomitant]
     Route: 048
  19. DESOXIMETASONE [Concomitant]
     Dosage: DESOXIMETASONE CREAM 0.25 PERCENT
     Dates: start: 20100701
  20. LEVOTHYROXINE SODIUM [Concomitant]
     Route: 048
  21. TYLENOL-500 [Concomitant]
     Indication: PYREXIA
     Dosage: 1 DF= 650
  22. LOPRESSOR [Concomitant]
     Route: 048
     Dates: start: 20110422
  23. FUROSEMIDE [Concomitant]
     Route: 048
  24. OXYCODONE [Concomitant]
     Indication: PAIN
     Dosage: 5MG TO 10MG AS NECESSARY
     Route: 048
  25. BELATACEPT [Suspect]
     Indication: RENAL TRANSPLANT
     Dosage: 5MG IVPB Q4WK
     Route: 042
     Dates: start: 20071214
  26. CATAPRES [Concomitant]
     Route: 048
     Dates: start: 20071213
  27. LOPRESSOR [Concomitant]
  28. SIROLIMUS [Suspect]
     Indication: RENAL TRANSPLANT
     Dosage: ALSO TAKEN AS CONMED IN TRADE NAME RAPAMUNE.
     Route: 048
     Dates: start: 20071214
  29. MYCOPHENOLATE MOFETIL (CELLCEPT) [Suspect]
     Indication: RENAL TRANSPLANT
     Route: 048
     Dates: start: 20110831
  30. LIPITOR [Concomitant]
     Route: 048
     Dates: start: 20090209
  31. LONITEN [Concomitant]

REACTIONS (8)
  - DIABETIC FOOT [None]
  - CHILLS [None]
  - CELLULITIS [None]
  - PNEUMONIA [None]
  - BACTERAEMIA [None]
  - HYPOXIA [None]
  - DYSPNOEA [None]
  - PYREXIA [None]
